FAERS Safety Report 13404779 (Version 5)
Quarter: 2017Q2

REPORT INFORMATION
  Report Type: Report from Study
  Country: CO (occurrence: CO)
  Receive Date: 20170405
  Receipt Date: 20170623
  Transmission Date: 20170830
  Serious: Yes (Hospitalization, Other)
  Sender: FDA-Public Use
  Company Number: CO-AMGEN-COLSL2017036915

PATIENT
  Age: 21 Year
  Sex: Male
  Weight: 79 kg

DRUGS (2)
  1. NPLATE [Suspect]
     Active Substance: ROMIPLOSTIM
     Indication: IMMUNE THROMBOCYTOPENIC PURPURA
     Dosage: 250 MUG, QWK
     Route: 058
     Dates: start: 20150326
  2. TRANEXAMIC ACID. [Concomitant]
     Active Substance: TRANEXAMIC ACID
     Dosage: 500 MG, UNK
     Dates: start: 20170322

REACTIONS (6)
  - Jaundice [Not Recovered/Not Resolved]
  - Erythema [Recovering/Resolving]
  - Rectal haemorrhage [Recovering/Resolving]
  - Gingival bleeding [Recovered/Resolved]
  - Thrombocytopenia [Recovering/Resolving]
  - Petechiae [Not Recovered/Not Resolved]

NARRATIVE: CASE EVENT DATE: 20170304
